FAERS Safety Report 15759354 (Version 1)
Quarter: 2018Q4

REPORT INFORMATION
  Report Type: Spontaneous
  Country: ES (occurrence: ES)
  Receive Date: 20181226
  Receipt Date: 20181226
  Transmission Date: 20190205
  Serious: Yes (Other)
  Sender: FDA-Public Use
  Company Number: ES-AMGEN-ESPSP2018159735

PATIENT
  Age: 75 Year
  Sex: Female

DRUGS (12)
  1. REPATHA [Suspect]
     Active Substance: EVOLOCUMAB
     Indication: HYPERCHOLESTEROLAEMIA
     Dosage: UNK
     Route: 058
  2. ADIRO [Concomitant]
     Active Substance: ASPIRIN
  3. LEVOGASTROL [Concomitant]
  4. MONTELUKAST [Concomitant]
     Active Substance: MONTELUKAST SODIUM
  5. NEXIUM [Concomitant]
     Active Substance: ESOMEPRAZOLE MAGNESIUM
  6. REPATHA [Suspect]
     Active Substance: EVOLOCUMAB
     Indication: LOW DENSITY LIPOPROTEIN ABNORMAL
     Dosage: 140 MG, Q2WK
     Route: 058
     Dates: start: 20180827, end: 20180924
  7. LORAZEPAM. [Concomitant]
     Active Substance: LORAZEPAM
  8. ALIROCUMAB [Concomitant]
     Active Substance: ALIROCUMAB
     Dosage: 75 MG, UNK
  9. LOSARTAN. [Concomitant]
     Active Substance: LOSARTAN
     Dosage: 25 UNK, UNK
  10. BISOPROLOL [Concomitant]
     Active Substance: BISOPROLOL
  11. BROMAZEPAM [Concomitant]
     Active Substance: BROMAZEPAM
  12. PRISTIQ EXTENDED-RELEASE [Concomitant]
     Active Substance: DESVENLAFAXINE SUCCINATE

REACTIONS (2)
  - Dry skin [Recovered/Resolved]
  - Pruritus [Recovered/Resolved]

NARRATIVE: CASE EVENT DATE: 20180828
